FAERS Safety Report 10031997 (Version 1)
Quarter: 2014Q1

REPORT INFORMATION
  Report Type: Spontaneous
  Country: CL (occurrence: CL)
  Receive Date: 20140324
  Receipt Date: 20140324
  Transmission Date: 20141002
  Serious: Yes (Other)
  Sender: FDA-Public Use
  Company Number: CL-PFIZER INC-2014079289

PATIENT
  Age: 86 Year
  Sex: Female

DRUGS (5)
  1. XALATAN [Suspect]
     Indication: GLAUCOMA
     Dosage: 1 DROP, 1X/DAY
     Route: 047
     Dates: start: 2004
  2. LOSARTAN [Concomitant]
     Dosage: UNK
     Dates: start: 1994
  3. ATORVASTATIN [Concomitant]
     Dosage: UNK
     Dates: start: 1994
  4. METFORMIN [Concomitant]
     Dosage: UNK
  5. ARTIFICIAL TEARS [Concomitant]
     Dosage: UNK

REACTIONS (1)
  - Hearing impaired [Not Recovered/Not Resolved]
